FAERS Safety Report 6312920-1 (Version None)
Quarter: 2009Q3

REPORT INFORMATION
  Report Type: 
  Country: None (occurrence: None)
  Receive Date: 20090818
  Receipt Date: 20090812
  Transmission Date: 20100115
  Serious: Yes (Hospitalization)
  Sender: FDA-Public Use
  Company Number: FR-ROCHE-650023

PATIENT
  Sex: Male

DRUGS (17)
  1. RIVOTRIL [Suspect]
     Route: 048
     Dates: start: 20090505, end: 20090512
  2. TOPALGIC [Suspect]
     Dosage: START DATE: MAY 2009; 1 DF ONCE DAILY
     Route: 048
     Dates: end: 20090513
  3. ZOLOFT [Suspect]
     Indication: DEPRESSION
     Dosage: DRUG: ZOLOFET 50 MG, 2 DF ONCE DAILY
     Route: 048
     Dates: start: 20090504, end: 20090513
  4. ATARAX [Concomitant]
     Dosage: DRUG: ATARAX 100MG, FREQUENCY: ONCE
     Route: 048
     Dates: start: 20090514, end: 20090514
  5. NEXIUM [Concomitant]
     Dosage: DRUG: INEXIUM 40, IN THE EVENING
     Dates: start: 20090501
  6. NEXIUM [Concomitant]
     Dosage: REINTRODUCED
  7. KARDEGIC [Concomitant]
     Dosage: DRUG: KARDEGIC 160; START DATE: MAY 2009
     Dates: end: 20090509
  8. KARDEGIC [Concomitant]
     Dosage: REINTRODUCED
  9. PARACETAMOL [Concomitant]
     Dosage: DOSE: 1 G FOURTH DAILY
     Dates: start: 20090501
  10. PARACETAMOL [Concomitant]
     Dosage: REINTRODUCED
  11. LOVENOX [Concomitant]
     Dosage: DRUG: LOVENOX 0,4
     Dates: start: 20090501
  12. LOVENOX [Concomitant]
     Dosage: REINTRODUCED
  13. TARDYFERON [Concomitant]
     Dosage: AT LUNCH TIME
     Dates: start: 20090501
  14. TARDYFERON [Concomitant]
     Dosage: REINTRODUCED
  15. FORLAX [Concomitant]
     Dates: start: 20090501
  16. NORMACOL [Concomitant]
     Dates: start: 20090501
  17. NUTRISON [Concomitant]
     Dates: start: 20090501

REACTIONS (1)
  - CONVULSION [None]
